FAERS Safety Report 9011056 (Version 2)
Quarter: 2013Q1

REPORT INFORMATION
  Report Type: Spontaneous
  Country: US (occurrence: US)
  Receive Date: 20130109
  Receipt Date: 20130214
  Transmission Date: 20140127
  Serious: Yes (Death)
  Sender: FDA-Public Use
  Company Number: US-GLAXOSMITHKLINE-A1007696A

PATIENT
  Sex: Male

DRUGS (1)
  1. VOTRIENT [Suspect]
     Route: 048
     Dates: start: 20120525

REACTIONS (1)
  - Death [Fatal]
